FAERS Safety Report 4967432-4 (Version None)
Quarter: 2006Q2

REPORT INFORMATION
  Report Type: 
  Country: None (occurrence: None)
  Receive Date: 20060407
  Receipt Date: 20060407
  Transmission Date: 20061013
  Serious: Yes (Hospitalization)
  Sender: FDA-Public Use
  Company Number: None

PATIENT
  Age: 64 Year
  Sex: Male
  Weight: 111 kg

DRUGS (1)
  1. HEPARIN [Suspect]
     Indication: THROMBOSIS PROPHYLAXIS
     Dosage: 5000 UNITS   EVERY 8 HOURS   SQ  (3 DOSES)
     Route: 058
     Dates: start: 20060331, end: 20060401

REACTIONS (4)
  - BLOOD BLISTER [None]
  - INJECTION SITE NECROSIS [None]
  - INJECTION SITE PAIN [None]
  - WOUND [None]
